FAERS Safety Report 20255959 (Version 1)
Quarter: 2021Q4

REPORT INFORMATION
  Report Type: Spontaneous
  Country: FR (occurrence: FR)
  Receive Date: 20211230
  Receipt Date: 20211230
  Transmission Date: 20220303
  Serious: Yes (Other)
  Sender: FDA-Public Use
  Company Number: None

PATIENT
  Age: 68 Year
  Sex: Female
  Weight: 90 kg

DRUGS (3)
  1. ENTRESTO [Suspect]
     Active Substance: SACUBITRIL\VALSARTAN
     Indication: Product prescribing error
     Dosage: 2 DOSAGE FORM, QD
     Route: 048
     Dates: start: 20211215, end: 20211216
  2. XARELTO [Suspect]
     Active Substance: RIVAROXABAN
     Indication: Product prescribing error
     Dosage: 20 MG, QD
     Route: 048
     Dates: start: 20211215, end: 20211216
  3. CORGARD [Suspect]
     Active Substance: NADOLOL
     Indication: Product prescribing error
     Dosage: 80 MG, QD
     Route: 048
     Dates: start: 20211215, end: 20211216

REACTIONS (1)
  - Rectal haemorrhage [Recovered/Resolved]

NARRATIVE: CASE EVENT DATE: 20211216
